FAERS Safety Report 18706252 (Version 1)
Quarter: 2021Q1

REPORT INFORMATION
  Report Type: Spontaneous
  Country: US (occurrence: US)
  Receive Date: 20210106
  Receipt Date: 20210106
  Transmission Date: 20210419
  Serious: Yes (Other)
  Sender: FDA-Public Use
  Company Number: US-BAYER-2021-010458

PATIENT
  Age: 43 Year
  Sex: Female

DRUGS (1)
  1. MIRENA [Suspect]
     Active Substance: LEVONORGESTREL
     Indication: CONTRACEPTION
     Dosage: 20  ?G PER DAY CONT
     Route: 015
     Dates: start: 20190913

REACTIONS (4)
  - Embedded device [Not Recovered/Not Resolved]
  - Abdominal pain lower [None]
  - Vaginal discharge [None]
  - Vulvovaginal pruritus [None]

NARRATIVE: CASE EVENT DATE: 20201203
